FAERS Safety Report 6943988-7 (Version None)
Quarter: 2010Q3

REPORT INFORMATION
  Report Type: 
  Country: None (occurrence: None)
  Receive Date: 20100827
  Receipt Date: 20100824
  Transmission Date: 20110219
  Serious: Yes (Other)
  Sender: FDA-Public Use
  Company Number: US-ASTRAZENECA-2008UW04313

PATIENT
  Age: 63 Year
  Sex: Male
  Weight: 122.5 kg

DRUGS (10)
  1. SEROQUEL [Suspect]
     Indication: ANXIETY
     Route: 048
     Dates: start: 20060907, end: 20070319
  2. SEROQUEL [Suspect]
     Indication: DEPRESSION
     Route: 048
     Dates: start: 20060907, end: 20070319
  3. SEROQUEL [Suspect]
     Route: 048
     Dates: start: 20060907, end: 20070420
  4. SEROQUEL [Suspect]
     Route: 048
     Dates: start: 20060907, end: 20070420
  5. PREDNISONE [Concomitant]
     Dosage: 10-40 MG
     Route: 048
     Dates: start: 20070530
  6. NEXIUM [Concomitant]
     Indication: GASTROOESOPHAGEAL REFLUX DISEASE
     Route: 048
     Dates: start: 20070628
  7. NAMENDA [Concomitant]
     Indication: DEMENTIA
     Dates: start: 20071031
  8. HYDROCHLOROTHIAZIDE [Concomitant]
     Indication: HYPERTENSION
     Route: 048
     Dates: start: 20070626
  9. MUCINEX [Concomitant]
     Route: 048
     Dates: start: 20070530
  10. PHENERGAN [Concomitant]
     Indication: NAUSEA
     Dosage: 25 MG, EVERY FOUR HRS AS NEEDED
     Route: 048
     Dates: start: 20070626

REACTIONS (8)
  - BLOOD CHOLESTEROL INCREASED [None]
  - DIABETES MELLITUS [None]
  - DIABETIC COMPLICATION [None]
  - DIABETIC NEUROPATHY [None]
  - GALLBLADDER DISORDER [None]
  - HYPERLIPIDAEMIA [None]
  - TYPE 2 DIABETES MELLITUS [None]
  - WEIGHT INCREASED [None]
